FAERS Safety Report 12853262 (Version 4)
Quarter: 2020Q3

REPORT INFORMATION
  Report Type: Report from Study
  Country: US (occurrence: US)
  Receive Date: 20161017
  Receipt Date: 20161209
  Transmission Date: 20201104
  Serious: Yes (Death, Hospitalization)
  Sender: FDA-Public Use
  Company Number: US-JNJFOC-20161006801

PATIENT
  Age: 39 Year
  Sex: Female
  Weight: 65.9 kg

DRUGS (24)
  1. ALPRAZOLAM. [Concomitant]
     Active Substance: ALPRAZOLAM
     Indication: INSOMNIA
     Route: 048
     Dates: start: 2012, end: 20160930
  2. DILAUDID [Concomitant]
     Active Substance: HYDROMORPHONE HYDROCHLORIDE
     Indication: NON-CARDIAC CHEST PAIN
     Route: 048
     Dates: start: 20160801, end: 20160930
  3. MORPHINE [Concomitant]
     Active Substance: MORPHINE
     Indication: MUSCULOSKELETAL PAIN
     Route: 048
     Dates: start: 20160802, end: 20160830
  4. IBRUTINIB [Suspect]
     Active Substance: IBRUTINIB
     Indication: NEOPLASM
     Route: 048
     Dates: start: 20160815, end: 20160930
  5. MORPHINE [Concomitant]
     Active Substance: MORPHINE
     Indication: NON-CARDIAC CHEST PAIN
     Route: 048
     Dates: start: 20160802, end: 20160830
  6. MIRALAX [Concomitant]
     Active Substance: POLYETHYLENE GLYCOL 3350
     Indication: CONSTIPATION
     Route: 048
     Dates: start: 20160810, end: 20160830
  7. MEDI4736 [Suspect]
     Active Substance: DURVALUMAB
     Indication: NEOPLASM
     Dosage: 65.1 MG/KG, Q 2 WEEKS
     Route: 042
     Dates: start: 20160815
  8. NORMAL SALINE [Concomitant]
     Active Substance: SODIUM CHLORIDE
     Indication: BLOOD CREATININE INCREASED
     Dosage: SINGLE OVER 2 HOURS
     Route: 042
     Dates: start: 20160801, end: 20160801
  9. ALBUTEROL. [Concomitant]
     Active Substance: ALBUTEROL
     Indication: DYSPNOEA
     Dosage: 2.5 UNK, PRN
     Route: 055
     Dates: start: 20160926
  10. BIFIDOBACTERIUM LACTIS [Concomitant]
     Indication: SUPPLEMENTATION THERAPY
     Route: 048
     Dates: start: 2014, end: 20160930
  11. DILAUDID [Concomitant]
     Active Substance: HYDROMORPHONE HYDROCHLORIDE
     Indication: MUSCULOSKELETAL PAIN
     Route: 048
     Dates: start: 20160801, end: 20160930
  12. REGLAN [Concomitant]
     Active Substance: METOCLOPRAMIDE HYDROCHLORIDE
     Indication: ABDOMINAL PAIN
     Route: 048
     Dates: start: 20160822, end: 20160930
  13. LORAZEPAM. [Concomitant]
     Active Substance: LORAZEPAM
     Indication: ANXIETY
     Route: 048
     Dates: start: 2012, end: 20160930
  14. ALPRAZOLAM. [Concomitant]
     Active Substance: ALPRAZOLAM
     Indication: ANXIETY
     Route: 048
     Dates: start: 2012, end: 20160930
  15. CARICA PAPAYA [Concomitant]
     Indication: SUPPLEMENTATION THERAPY
     Route: 048
     Dates: start: 2014, end: 20160930
  16. VITAMINE D [Concomitant]
     Indication: SUPPLEMENTATION THERAPY
     Route: 048
     Dates: start: 2014
  17. DOCUSATE [Concomitant]
     Active Substance: DOCUSATE
     Indication: CONSTIPATION
     Route: 048
     Dates: start: 20160810
  18. ADDERALL [Concomitant]
     Active Substance: AMPHETAMINE ASPARTATE\AMPHETAMINE SULFATE\DEXTROAMPHETAMINE SACCHARATE\DEXTROAMPHETAMINE SULFATE
     Indication: ATTENTION DEFICIT HYPERACTIVITY DISORDER
     Dosage: 10/20 MG
     Route: 048
     Dates: start: 201304, end: 20160930
  19. IMMUNOGLOBULIN G HUMAN [Concomitant]
     Active Substance: HUMAN IMMUNOGLOBULIN G
     Indication: SUPPLEMENTATION THERAPY
     Route: 048
     Dates: start: 2014, end: 20160930
  20. GLUTAMIC ACID [Concomitant]
     Active Substance: GLUTAMIC ACID
     Indication: SUPPLEMENTATION THERAPY
     Route: 048
     Dates: start: 2014, end: 20160930
  21. LEVAQUIN [Concomitant]
     Active Substance: LEVOFLOXACIN
     Indication: URINARY TRACT INFECTION
     Route: 048
     Dates: start: 20160822, end: 20160824
  22. IBRUTINIB [Suspect]
     Active Substance: IBRUTINIB
     Route: 048
  23. MEDI4736 [Suspect]
     Active Substance: DURVALUMAB
     Indication: NEOPLASM
     Route: 042
     Dates: start: 20160815, end: 20161026
  24. HYDROCODONE [Concomitant]
     Active Substance: HYDROCODONE
     Indication: NON-CARDIAC CHEST PAIN
     Dosage: 10/325 MG PRN
     Route: 048
     Dates: start: 2014, end: 20160930

REACTIONS (1)
  - Neoplasm [Fatal]

NARRATIVE: CASE EVENT DATE: 20160930
